FAERS Safety Report 5393466-4 (Version None)
Quarter: 2007Q3

REPORT INFORMATION
  Report Type: 
  Country: None (occurrence: None)
  Receive Date: 20070723
  Receipt Date: 20060602
  Transmission Date: 20080115
  Serious: No
  Sender: FDA-Public Use
  Company Number: A0608404A

PATIENT
  Age: 59 Year
  Sex: Female

DRUGS (4)
  1. AVANDIA [Suspect]
     Indication: DRUG USE FOR UNKNOWN INDICATION
     Dosage: 4MG PER DAY
     Route: 065
     Dates: end: 20060424
  2. BYETTA [Suspect]
     Dosage: 5MCG TWICE PER DAY
     Route: 058
     Dates: start: 20050401
  3. METFORMIN HCL [Concomitant]
  4. GLUCOTROL [Concomitant]
     Dates: end: 20060424

REACTIONS (7)
  - ASTHENIA [None]
  - BLOOD GLUCOSE INCREASED [None]
  - DECREASED APPETITE [None]
  - FEELING JITTERY [None]
  - NAUSEA [None]
  - SWELLING [None]
  - TREMOR [None]
